FAERS Safety Report 21112807 (Version 2)
Quarter: 2022Q4

REPORT INFORMATION
  Report Type: Spontaneous
  Country: US (occurrence: None)
  Receive Date: 20220721
  Receipt Date: 20221226
  Transmission Date: 20230112
  Serious: No
  Sender: FDA-Public Use
  Company Number: US-Merck Healthcare KGaA-9336114

PATIENT
  Sex: Female

DRUGS (1)
  1. REBIF [Suspect]
     Active Substance: INTERFERON BETA-1A
     Indication: Multiple sclerosis
     Dosage: STRENGTH: 44MCG/.5ML
     Route: 058
     Dates: start: 202203

REACTIONS (1)
  - General physical condition abnormal [Unknown]
